FAERS Safety Report 23351843 (Version 1)
Quarter: 2023Q4

REPORT INFORMATION
  Report Type: Report from Study
  Country: CN (occurrence: CN)
  Receive Date: 20231229
  Receipt Date: 20231229
  Transmission Date: 20240109
  Serious: Yes (Hospitalization)
  Sender: FDA-Public Use
  Company Number: CN-BRISTOL-MYERS SQUIBB COMPANY-2023-147658

PATIENT
  Age: 60 Year
  Sex: Female
  Weight: 68 kg

DRUGS (10)
  1. DARATUMUMAB [Suspect]
     Active Substance: DARATUMUMAB
     Indication: Plasma cell myeloma refractory
     Dosage: FIRST REGIMEN
     Route: 058
     Dates: start: 20230615, end: 20230629
  2. DARATUMUMAB [Suspect]
     Active Substance: DARATUMUMAB
     Dosage: SECOND REGIMEN
     Route: 058
     Dates: start: 20230714, end: 20230803
  3. DARATUMUMAB [Suspect]
     Active Substance: DARATUMUMAB
     Dosage: THIRD REGIMEN
     Route: 058
     Dates: start: 20230809, end: 20230920
  4. POMALIDOMIDE [Suspect]
     Active Substance: POMALIDOMIDE
     Indication: Plasma cell myeloma refractory
     Dosage: FIRST REGIMEN
     Route: 048
     Dates: start: 20230615, end: 20230705
  5. POMALIDOMIDE [Suspect]
     Active Substance: POMALIDOMIDE
     Dosage: SECOND REGIMEN
     Route: 048
     Dates: start: 20230714, end: 20230803
  6. POMALIDOMIDE [Suspect]
     Active Substance: POMALIDOMIDE
     Dosage: THIRD REGIMEN
     Route: 048
     Dates: start: 20230906, end: 20230927
  7. POMALIDOMIDE [Suspect]
     Active Substance: POMALIDOMIDE
     Dosage: FOURTH REGIMEN
     Route: 048
     Dates: start: 20230809, end: 20230830
  8. POMALIDOMIDE [Suspect]
     Active Substance: POMALIDOMIDE
     Route: 048
     Dates: start: 20231108
  9. DEXAMETHASONE [Suspect]
     Active Substance: DEXAMETHASONE
     Indication: Plasma cell myeloma refractory
     Dosage: FIRST REGIMEN
     Route: 048
     Dates: start: 20230615, end: 20230629
  10. DEXAMETHASONE [Suspect]
     Active Substance: DEXAMETHASONE
     Dosage: SECOND REGIMEN
     Route: 048
     Dates: start: 20230714, end: 20230927

REACTIONS (1)
  - Pneumonitis [Recovered/Resolved]

NARRATIVE: CASE EVENT DATE: 20231001
